FAERS Safety Report 4653931-1 (Version None)
Quarter: 2005Q2

REPORT INFORMATION
  Report Type: 
  Country: None (occurrence: None)
  Receive Date: 20050404
  Receipt Date: 20041202
  Transmission Date: 20051028
  Serious: No
  Sender: FDA-Public Use
  Company Number: USA041285145

PATIENT
  Age: 68 Year
  Sex: Male

DRUGS (5)
  1. CYMBALTA [Suspect]
     Indication: FIBROMYALGIA
     Dosage: 30 MG/TWICE DAY
     Dates: start: 20041202
  2. ALPRAZOLAM [Concomitant]
  3. TEMAZEPAM [Concomitant]
  4. DIOVAN [Concomitant]
  5. ELMIRON [Concomitant]

REACTIONS (3)
  - FEELING ABNORMAL [None]
  - HEADACHE [None]
  - MYALGIA [None]
